FAERS Safety Report 7489002-9 (Version None)
Quarter: 2011Q2

REPORT INFORMATION
  Report Type: 
  Country: None (occurrence: None)
  Receive Date: 20110518
  Receipt Date: 20110325
  Transmission Date: 20111010
  Serious: Yes (Death, Life-Threatening, Hospitalization, Other)
  Sender: FDA-Public Use
  Company Number: BR-BAYER-2011-023573

PATIENT
  Age: 73 Year
  Sex: Male
  Weight: 82.5 kg

DRUGS (25)
  1. BLINDED SORAFENIB (RAF KINASE INHIBITOR) [Suspect]
     Dosage: 100 MG, QD
     Dates: start: 20110117, end: 20110228
  2. NORFLOXACIN [Concomitant]
     Dosage: 800 MG, UNK
     Dates: start: 20110322, end: 20110327
  3. BLINDED SORAFENIB (RAF KINASE INHIBITOR) [Suspect]
     Dosage: 100 MG, QD
     Dates: start: 20101005, end: 20101024
  4. BLINDED SORAFENIB (RAF KINASE INHIBITOR) [Suspect]
     Dosage: 100 MG, QD
     Dates: start: 20101025, end: 20101205
  5. SORAFENIB (RAF KINASE INHIBITOR) [Suspect]
     Indication: HEPATIC NEOPLASM MALIGNANT
     Dosage: 400 MG, BID
     Route: 048
     Dates: start: 20100914, end: 20100923
  6. SORAFENIB (RAF KINASE INHIBITOR) [Suspect]
     Dosage: 400 MG, BID
     Route: 048
     Dates: start: 20101005, end: 20101010
  7. SORAFENIB (RAF KINASE INHIBITOR) [Suspect]
     Dosage: 400 MG, BID
     Route: 048
     Dates: start: 20110117, end: 20110308
  8. BLINDED SORAFENIB (RAF KINASE INHIBITOR) [Suspect]
     Dosage: 100 MG, QD
     Dates: start: 20110301, end: 20110309
  9. RELIEV [Concomitant]
     Indication: DIAGNOSTIC PROCEDURE
     Dosage: 14 G, UNK
     Dates: start: 20100908
  10. NORFLOXACIN [Concomitant]
     Dosage: 400 MG, UNK
     Dates: start: 20110325, end: 20110325
  11. SORAFENIB (RAF KINASE INHIBITOR) [Suspect]
     Dosage: 400 MG, QD
     Route: 048
     Dates: start: 20100924, end: 20100924
  12. NORFLOXACIN [Concomitant]
     Indication: PROPHYLAXIS
     Dosage: 400 MG, UNK
     Dates: start: 20110319
  13. DIMETICONE [Concomitant]
     Indication: ABDOMINAL PAIN UPPER
     Dosage: 30 DROPS
     Dates: start: 20110411, end: 20110422
  14. SORAFENIB (RAF KINASE INHIBITOR) [Suspect]
     Dosage: 400 MG, QD
     Route: 048
     Dates: start: 20110309, end: 20110309
  15. BLINDED SORAFENIB (RAF KINASE INHIBITOR) [Suspect]
  16. LUFTAL [Concomitant]
     Indication: ABDOMINAL PAIN UPPER
     Dosage: 125 MG-375 MG, PRN
     Dates: start: 20100909
  17. SORAFENIB (RAF KINASE INHIBITOR) [Suspect]
     Dosage: 400 MG, BID
     Route: 048
     Dates: start: 20101011, end: 20101024
  18. BLINDED SORAFENIB (RAF KINASE INHIBITOR) [Suspect]
     Dosage: 100 MG, QD
     Dates: start: 20101206, end: 20110116
  19. ULTRAVIST 150 [Concomitant]
     Indication: DIAGNOSTIC PROCEDURE
     Dosage: 1.5 ML/ KG
     Dates: start: 20100908, end: 20100908
  20. NORFLOXACIN [Concomitant]
     Dosage: 400 MG, UNK
     Dates: start: 20110328, end: 20110328
  21. SORAFENIB (RAF KINASE INHIBITOR) [Suspect]
     Dosage: 400 MG, BID
     Route: 048
     Dates: start: 20101206, end: 20110116
  22. BLINDED SORAFENIB (RAF KINASE INHIBITOR) [Suspect]
     Indication: HEPATIC NEOPLASM MALIGNANT
     Dosage: 150 MG, QD
     Dates: start: 20100914, end: 20100924
  23. TRAMADOL HYDROCHLORIDE [Concomitant]
     Indication: ABDOMINAL PAIN UPPER
     Dosage: 1 DF, UNK
     Dates: start: 20100908, end: 20100908
  24. NORFLOXACIN [Concomitant]
     Dosage: 400 MG, UNK
     Dates: start: 20110321, end: 20110321
  25. PROPOFOL [Concomitant]
     Indication: SEDATION
     Dosage: 200 MG, UNK
     Dates: start: 20110320, end: 20110320

REACTIONS (10)
  - UPPER GASTROINTESTINAL HAEMORRHAGE [None]
  - PNEUMONIA BACTERIAL [None]
  - OLIGURIA [None]
  - ENDOCARDITIS [None]
  - ENTEROBACTER INFECTION [None]
  - HEPATIC FAILURE [None]
  - LOWER GASTROINTESTINAL HAEMORRHAGE [None]
  - HEPATIC ENCEPHALOPATHY [None]
  - INTERSTITIAL LUNG DISEASE [None]
  - STAPHYLOCOCCAL INFECTION [None]
